FAERS Safety Report 23061481 (Version 5)
Quarter: 2024Q3

REPORT INFORMATION
  Report Type: Report from Study
  Country: FR (occurrence: FR)
  Receive Date: 20231013
  Receipt Date: 20240829
  Transmission Date: 20241017
  Serious: Yes (Life-Threatening, Hospitalization, Other)
  Sender: AUROBINDO
  Company Number: FR-GRUNENTHAL-2023-275213

PATIENT
  Age: 72 Year
  Sex: Female

DRUGS (4)
  1. BROMAZEPAM [Interacting]
     Active Substance: BROMAZEPAM
     Indication: Product used for unknown indication
     Dosage: UNK
     Route: 065
  2. TRAMADOL [Interacting]
     Active Substance: TRAMADOL\TRAMADOL HYDROCHLORIDE
     Indication: Product used for unknown indication
     Dosage: UNK
     Route: 065
  3. ZOLPIDEM [Interacting]
     Active Substance: ZOLPIDEM TARTRATE
     Indication: Product used for unknown indication
     Dosage: UNK
     Route: 065
  4. ALCOHOL [Suspect]
     Active Substance: ALCOHOL
     Indication: Product used for unknown indication
     Dosage: UNK
     Route: 065

REACTIONS (19)
  - Cardiac failure [Unknown]
  - Pneumonia aspiration [Unknown]
  - Poisoning deliberate [Unknown]
  - Hypoxia [Unknown]
  - Acute hepatic failure [Unknown]
  - Acute kidney injury [Unknown]
  - Coma [Unknown]
  - Cerebral microhaemorrhage [Recovering/Resolving]
  - Encephalopathy [Unknown]
  - Executive dysfunction [Unknown]
  - Extrapyramidal disorder [Unknown]
  - Confusional state [Unknown]
  - Motor dysfunction [Unknown]
  - Cardiovascular disorder [Unknown]
  - Toxicity to various agents [Recovering/Resolving]
  - Drug interaction [Unknown]
  - Hepatic function abnormal [Unknown]
  - Memory impairment [Unknown]
  - Overdose [Unknown]
